FAERS Safety Report 11717145 (Version 3)
Quarter: 2015Q4

REPORT INFORMATION
  Report Type: Spontaneous
  Country: US (occurrence: US)
  Receive Date: 20151104
  Receipt Date: 20151120
  Transmission Date: 20160304
  Serious: No
  Sender: FDA-Public Use
  Company Number: US-ELI_LILLY_AND_COMPANY-US201106002517

PATIENT
  Age: 80 Year
  Sex: Female

DRUGS (3)
  1. CALCIUM [Concomitant]
     Active Substance: CALCIUM
     Dosage: UNK
  2. FORTEO [Suspect]
     Active Substance: TERIPARATIDE
     Dosage: 20 UG, QD
  3. FORTEO [Suspect]
     Active Substance: TERIPARATIDE
     Indication: OSTEOPOROSIS
     Dosage: 20 UG, QD
     Route: 065
     Dates: start: 201105

REACTIONS (9)
  - Constipation [Unknown]
  - Arthralgia [Unknown]
  - Incorrect dose administered [Unknown]
  - Myalgia [Unknown]
  - Bone pain [Not Recovered/Not Resolved]
  - Muscle spasms [Unknown]
  - Micturition urgency [Unknown]
  - Pain in extremity [Unknown]
  - Pain [Not Recovered/Not Resolved]

NARRATIVE: CASE EVENT DATE: 201105
